FAERS Safety Report 7104451-6 (Version None)
Quarter: 2010Q4

REPORT INFORMATION
  Report Type: 
  Country: None (occurrence: None)
  Receive Date: 20101116
  Receipt Date: 20101112
  Transmission Date: 20110411
  Serious: Yes (Hospitalization)
  Sender: FDA-Public Use
  Company Number: US-BIOGENIDEC-2010BI033703

PATIENT
  Age: 55 Year
  Sex: Male

DRUGS (6)
  1. AVONEX [Suspect]
     Indication: MULTIPLE SCLEROSIS
     Route: 030
     Dates: start: 20040624, end: 20060921
  2. AVONEX [Suspect]
     Route: 030
     Dates: start: 20090508
  3. PREDNISONE [Concomitant]
     Indication: FATIGUE
  4. PREDNISONE [Concomitant]
     Indication: INFLUENZA LIKE ILLNESS
  5. ADVIL [Concomitant]
     Indication: INFLUENZA LIKE ILLNESS
  6. ADVIL [Concomitant]
     Indication: FATIGUE

REACTIONS (5)
  - CELLULITIS [None]
  - FATIGUE [None]
  - GAIT DISTURBANCE [None]
  - INFLUENZA LIKE ILLNESS [None]
  - WEIGHT DECREASED [None]
